FAERS Safety Report 20001902 (Version 3)
Quarter: 2022Q2

REPORT INFORMATION
  Report Type: Spontaneous
  Country: BR (occurrence: BR)
  Receive Date: 20211027
  Receipt Date: 20220628
  Transmission Date: 20220721
  Serious: Yes (Other)
  Sender: FDA-Public Use
  Company Number: BR-GLAXOSMITHKLINE-BR2021AMR219632

PATIENT

DRUGS (1)
  1. TRELEGY ELLIPTA [Suspect]
     Active Substance: FLUTICASONE FUROATE\UMECLIDINIUM BROMIDE\VILANTEROL TRIFENATATE
     Indication: Product used for unknown indication
     Dosage: UNK 100/62,5/25 MCG X 30 DOSES
     Dates: start: 2021, end: 2021

REACTIONS (6)
  - Respiratory failure [Recovered/Resolved]
  - Spirometry abnormal [Recovering/Resolving]
  - Skin reaction [Recovered/Resolved]
  - Contraindicated product administered [Unknown]
  - Product prescribing issue [Unknown]
  - Drug ineffective [Recovered/Resolved]
